FAERS Safety Report 9701962 (Version 1)
Quarter: 2013Q4

REPORT INFORMATION
  Report Type: Spontaneous
  Country: US (occurrence: None)
  Receive Date: 20131120
  Receipt Date: 20131120
  Transmission Date: 20140711
  Serious: Yes (Death)
  Sender: FDA-Public Use
  Company Number: None

PATIENT
  Age: 88 Year
  Sex: Male
  Weight: 75 kg

DRUGS (15)
  1. RITUXIMAB [Suspect]
     Indication: MANTLE CELL LYMPHOMA
     Dosage: 15MG ORAL
     Route: 048
     Dates: start: 20131029, end: 20131105
  2. LENALIDOMIDE [Suspect]
     Dosage: 701MG IV
     Route: 042
     Dates: start: 20131029, end: 20131108
  3. BORTEZOMIB [Suspect]
     Indication: MANTLE CELL LYMPHOMA
     Dosage: 2.5MG SQ
     Route: 058
  4. COUMADIN [Concomitant]
  5. PROTONIX [Concomitant]
  6. ALLOPURINOL [Concomitant]
  7. VALTREX [Concomitant]
  8. AMLODIPINE [Concomitant]
  9. BACTRIM [Concomitant]
  10. MULTI-VITAMIN [Concomitant]
  11. DEXAMETHASONE [Concomitant]
  12. BENADRYL [Concomitant]
  13. ZOFRAN [Concomitant]
  14. TYLENOL [Concomitant]
  15. DEXAMETHASONE [Concomitant]

REACTIONS (1)
  - Death [None]
